FAERS Safety Report 4692389-3 (Version None)
Quarter: 2005Q2

REPORT INFORMATION
  Report Type: 
  Country: None (occurrence: None)
  Receive Date: 20050616
  Receipt Date: 20050530
  Transmission Date: 20051028
  Serious: Yes (Hospitalization)
  Sender: FDA-Public Use
  Company Number: EWC041241982

PATIENT
  Age: 69 Year
  Sex: Female
  Weight: 69 kg

DRUGS (5)
  1. FORTEO [Suspect]
     Indication: OSTEOPOROSIS
     Dosage: 20 UG/1 DAY
     Dates: start: 20041118, end: 20041218
  2. MONOKET [Concomitant]
  3. PRETERAX [Concomitant]
  4. TOTALIP (ATORVASTATIN CALCIUM) [Concomitant]
  5. LOPRESSOR [Concomitant]

REACTIONS (3)
  - ATRIAL FIBRILLATION [None]
  - EXTRASYSTOLES [None]
  - PALPITATIONS [None]
